FAERS Safety Report 21229434 (Version 2)
Quarter: 2022Q3

REPORT INFORMATION
  Report Type: Report from Study
  Country: IT (occurrence: IT)
  Receive Date: 20220818
  Receipt Date: 20220822
  Transmission Date: 20221027
  Serious: Yes (Hospitalization, Other)
  Sender: FDA-Public Use
  Company Number: None

PATIENT
  Age: 16 Year
  Sex: Female

DRUGS (2)
  1. TOPAMAX [Suspect]
     Active Substance: TOPIRAMATE
     Indication: Drug abuse
     Dosage: QUANTITY NOT SPECIFIED
     Route: 048
  2. RISPERIDONE [Concomitant]
     Active Substance: RISPERIDONE
     Dosage: 0.5 ML IN THE MORNING, 0.5 ML IN THE AFTERNOON, 1 ML IN THE EVENING.

REACTIONS (7)
  - Drug abuse [Unknown]
  - Electrocardiogram repolarisation abnormality [Unknown]
  - Blood bicarbonate decreased [Unknown]
  - Metabolic acidosis [Unknown]
  - Sopor [Unknown]
  - Patient uncooperative [Unknown]
  - Fatigue [Unknown]

NARRATIVE: CASE EVENT DATE: 20220803
